FAERS Safety Report 7093893-3 (Version None)
Quarter: 2010Q4

REPORT INFORMATION
  Report Type: 
  Country: None (occurrence: None)
  Receive Date: 20101110
  Receipt Date: 20101021
  Transmission Date: 20110411
  Serious: Yes (Hospitalization, Other)
  Sender: FDA-Public Use
  Company Number: US-BAYER-200942931NA

PATIENT
  Age: 23 Year
  Sex: Female
  Weight: 82 kg

DRUGS (10)
  1. YAZ [Suspect]
     Indication: CONTRACEPTION
     Route: 048
     Dates: start: 20031001, end: 20040201
  2. YASMIN [Suspect]
     Indication: CONTRACEPTION
     Route: 048
     Dates: start: 20031001, end: 20040201
  3. NORCO [Concomitant]
     Indication: PAIN
     Dosage: 5 - 325 MG
     Dates: start: 20040217
  4. TORADOL [Concomitant]
     Indication: PAIN
     Route: 030
     Dates: start: 20040215, end: 20040201
  5. MILK OF MAGNESIA TAB [Concomitant]
     Indication: CONSTIPATION
     Dosage: 30
     Route: 048
     Dates: start: 20040215, end: 20040217
  6. PEPCID [Concomitant]
     Route: 048
     Dates: start: 20040215, end: 20040217
  7. ATIVAN [Concomitant]
     Indication: ANXIETY
     Dosage: 0.5 MG - 1 MG
     Route: 042
     Dates: start: 20040215, end: 20040217
  8. AMBIEN [Concomitant]
     Indication: SLEEP DISORDER
     Route: 048
     Dates: start: 20040215, end: 20040217
  9. VIOXX [Concomitant]
     Dates: start: 20040214
  10. ALEVE (CAPLET) [Concomitant]
     Dates: start: 20040214

REACTIONS (5)
  - CHEST PAIN [None]
  - DEEP VEIN THROMBOSIS [None]
  - DYSPNOEA [None]
  - PNEUMONIA [None]
  - PULMONARY EMBOLISM [None]
